FAERS Safety Report 19391384 (Version 3)
Quarter: 2022Q1

REPORT INFORMATION
  Report Type: Spontaneous
  Country: US (occurrence: US)
  Receive Date: 20210608
  Receipt Date: 20220218
  Transmission Date: 20220423
  Serious: Yes (Hospitalization, Other)
  Sender: FDA-Public Use
  Company Number: US-PFIZER INC-2021595083

PATIENT
  Age: 57 Year
  Sex: Female

DRUGS (1)
  1. EPINEPHRINE\LIDOCAINE HYDROCHLORIDE [Suspect]
     Active Substance: EPINEPHRINE\LIDOCAINE HYDROCHLORIDE
     Indication: Papilloma excision
     Dosage: 3-ML DIGITAL BLOCK OF 1% LIDOCAINE WITH 1:100,000 EPINEPHRINE

REACTIONS (1)
  - Extremity necrosis [Recovered/Resolved]
